FAERS Safety Report 5475404-9 (Version None)
Quarter: 2007Q4

REPORT INFORMATION
  Report Type: 
  Country: None (occurrence: None)
  Receive Date: 20071003
  Receipt Date: 20070926
  Transmission Date: 20080405
  Serious: Yes (Life-Threatening, Other)
  Sender: FDA-Public Use
  Company Number: HQWYE934109NOV06

PATIENT
  Sex: Female
  Weight: 57 kg

DRUGS (13)
  1. MYLOTARG [Suspect]
     Indication: ACUTE MYELOID LEUKAEMIA RECURRENT
     Route: 041
     Dates: start: 20060922, end: 20060922
  2. MYLOTARG [Suspect]
     Route: 041
     Dates: start: 20061011, end: 20061011
  3. RENIVACE [Concomitant]
     Route: 048
     Dates: start: 20030101, end: 20061025
  4. ADALAT [Concomitant]
     Route: 048
     Dates: start: 20060530, end: 20061025
  5. METHYCOBAL [Concomitant]
     Dosage: 1500 UG/DAY
     Route: 048
     Dates: start: 20060703, end: 20061025
  6. POTASSIUM CHLORIDE [Concomitant]
     Route: 041
     Dates: start: 20061004, end: 20061025
  7. MUCOSOLVAN [Concomitant]
     Route: 048
     Dates: start: 20061007, end: 20061025
  8. LEVOFLOXACIN [Concomitant]
     Indication: PROPHYLAXIS
     Route: 048
     Dates: start: 20060922, end: 20061025
  9. DIFLUCAN [Concomitant]
     Indication: PROPHYLAXIS
     Route: 048
     Dates: start: 20060922, end: 20061003
  10. FUNGUARD [Concomitant]
     Indication: PROPHYLAXIS
     Dosage: 75 MG EVERY
     Route: 041
     Dates: start: 20061004, end: 20061011
  11. FOY [Concomitant]
     Route: 041
     Dates: start: 20060924, end: 20061025
  12. LIVALO [Concomitant]
     Route: 048
     Dates: start: 20060817, end: 20061025
  13. ASPARA K [Concomitant]
     Dosage: 900 MG/DAY
     Route: 048
     Dates: start: 20060530, end: 20061025

REACTIONS (7)
  - BLOOD FIBRINOGEN DECREASED [None]
  - CONDITION AGGRAVATED [None]
  - DISSEMINATED INTRAVASCULAR COAGULATION [None]
  - FIBRIN DEGRADATION PRODUCTS INCREASED [None]
  - HYPOKALAEMIA [None]
  - PLATELET COUNT DECREASED [None]
  - WHITE BLOOD CELL COUNT DECREASED [None]
